FAERS Safety Report 5457311-0 (Version None)
Quarter: 2007Q3

REPORT INFORMATION
  Report Type: 
  Country: None (occurrence: None)
  Receive Date: 20070918
  Receipt Date: 20070906
  Transmission Date: 20080115
  Serious: Yes (Other)
  Sender: FDA-Public Use
  Company Number: US-PFIZER INC-2007064403

PATIENT
  Sex: Female

DRUGS (7)
  1. LIPITOR [Suspect]
  2. CHANTIX [Suspect]
     Indication: SMOKING CESSATION THERAPY
     Route: 048
     Dates: start: 20070101, end: 20070722
  3. ADVAIR DISKUS 100/50 [Suspect]
  4. ALL OTHER THERAPEUTIC PRODUCTS [Concomitant]
  5. EFFEXOR XR [Concomitant]
  6. SPIRIVA [Concomitant]
  7. ALBUTEROL [Concomitant]
     Route: 055

REACTIONS (16)
  - AGITATION [None]
  - ALANINE AMINOTRANSFERASE INCREASED [None]
  - APATHY [None]
  - ASTHENIA [None]
  - CHEST PAIN [None]
  - CHRONIC OBSTRUCTIVE PULMONARY DISEASE [None]
  - DYSPHONIA [None]
  - DYSPNOEA [None]
  - ERUCTATION [None]
  - FLATULENCE [None]
  - LEUKOCYTOCLASTIC VASCULITIS [None]
  - LOW DENSITY LIPOPROTEIN INCREASED [None]
  - ORAL CANDIDIASIS [None]
  - OSTEOPOROSIS [None]
  - URINARY INCONTINENCE [None]
  - WEIGHT INCREASED [None]
